FAERS Safety Report 23763715 (Version 1)
Quarter: 2024Q2

REPORT INFORMATION
  Report Type: Spontaneous
  Country: US (occurrence: US)
  Receive Date: 20240419
  Receipt Date: 20240419
  Transmission Date: 20240716
  Serious: Yes (Other)
  Sender: FDA-Public Use
  Company Number: US-FOUNDATIONCONSUMERHC-2024-US-021284

PATIENT
  Age: 57 Year
  Sex: Female
  Weight: 72.58 kg

DRUGS (1)
  1. DIMETAPP COLD AND COUGH AND DIMETAPP NIGHTTIME COLD AND CONGESTION [Suspect]
     Active Substance: BROMPHENIRAMINE MALEATE\DEXTROMETHORPHAN HYDROBROMIDE\DIPHENHYDRAMINE HYDROCHLORIDE\PHENYLEPHRINE HY
     Indication: Product used for unknown indication
     Dosage: 20ML EVERY 4 HOURS X 2 DOSES
     Route: 048
     Dates: start: 20240409, end: 20240409

REACTIONS (1)
  - Hallucination [Unknown]

NARRATIVE: CASE EVENT DATE: 20240409
